FAERS Safety Report 5296651-5 (Version None)
Quarter: 2007Q2

REPORT INFORMATION
  Report Type: 
  Country: None (occurrence: None)
  Receive Date: 20070413
  Receipt Date: 20070403
  Transmission Date: 20071010
  Serious: Yes (Hospitalization, Other)
  Sender: FDA-Public Use
  Company Number: US-ABBOTT-07P-163-0364149-00

PATIENT
  Sex: Male
  Weight: 90.8 kg

DRUGS (9)
  1. HUMIRA [Suspect]
     Indication: RHEUMATOID ARTHRITIS
     Dosage: SYRINGE
     Route: 058
     Dates: start: 20040101, end: 20050101
  2. HUMIRA [Suspect]
     Dosage: SYRINGE
     Route: 058
     Dates: start: 20060801, end: 20061201
  3. HUMIRA [Suspect]
     Dosage: PEM
     Route: 058
     Dates: start: 20061201
  4. MODAFINIL [Concomitant]
     Indication: DRUG USE FOR UNKNOWN INDICATION
  5. TESTOSTERONE [Concomitant]
     Indication: DRUG USE FOR UNKNOWN INDICATION
  6. LEVITRA [Concomitant]
     Indication: DRUG USE FOR UNKNOWN INDICATION
  7. PREDNISONE TAB [Concomitant]
     Indication: COLITIS ULCERATIVE
  8. BP MEDICATION [Concomitant]
     Indication: BLOOD PRESSURE
  9. CHOLESTEROL MEDICATION [Concomitant]
     Indication: DRUG USE FOR UNKNOWN INDICATION

REACTIONS (7)
  - ARTERIAL OCCLUSIVE DISEASE [None]
  - BALANCE DISORDER [None]
  - CAROTID ARTERY OCCLUSION [None]
  - CONVULSION [None]
  - DIZZINESS [None]
  - FALL [None]
  - MUSCLE SPASMS [None]
